FAERS Safety Report 11389907 (Version 2)
Quarter: 2015Q4

REPORT INFORMATION
  Report Type: Spontaneous
  Country: JP (occurrence: JP)
  Receive Date: 20150818
  Receipt Date: 20151002
  Transmission Date: 20160304
  Serious: Yes (Death, Hospitalization)
  Sender: FDA-Public Use
  Company Number: JP-ROCHE-1622209

PATIENT
  Age: 67 Year
  Sex: Male
  Weight: 58 kg

DRUGS (6)
  1. LEVOFOLINATE [Suspect]
     Active Substance: LEVOLEUCOVORIN CALCIUM
     Indication: COLON CANCER
     Dosage: DOSAGE IS UNCERTAIN.
     Route: 013
     Dates: start: 20141031
  2. PREDNISOLONE. [Concomitant]
     Active Substance: PREDNISOLONE
     Indication: MYASTHENIA GRAVIS
     Route: 048
  3. ELPLAT [Concomitant]
     Active Substance: OXALIPLATIN
     Indication: COLON CANCER
     Dosage: DOSAGE IS UNCERTAIN. ?THE EIGHTH
     Route: 041
     Dates: start: 20141031
  4. XELODA [Suspect]
     Active Substance: CAPECITABINE
     Dosage: THE EIGHTH 2 WEEKS ADMINSTRATION FOLLOWED BY WEEK 1 REST
     Route: 048
     Dates: start: 20141031, end: 20150508
  5. XELODA [Suspect]
     Active Substance: CAPECITABINE
     Indication: COLON CANCER
     Dosage: THE EIGHTH
     Route: 048
     Dates: start: 20141031, end: 20150508
  6. 5-FU [Suspect]
     Active Substance: FLUOROURACIL
     Indication: COLON CANCER
     Dosage: DOSAGE IS UNCERTAIN.
     Route: 013
     Dates: start: 20141031

REACTIONS (4)
  - Duodenal ulcer haemorrhage [Fatal]
  - Decubitus ulcer [Unknown]
  - Sepsis [Not Recovered/Not Resolved]
  - Shock haemorrhagic [Fatal]

NARRATIVE: CASE EVENT DATE: 2015
